FAERS Safety Report 13084955 (Version 1)
Quarter: 2017Q1

REPORT INFORMATION
  Report Type: Spontaneous
  Country: US (occurrence: US)
  Receive Date: 20170104
  Receipt Date: 20170104
  Transmission Date: 20170428
  Serious: No
  Sender: FDA-Public Use
  Company Number: None

PATIENT
  Age: 66 Year
  Sex: Female

DRUGS (1)
  1. IBRANCE [Suspect]
     Active Substance: PALBOCICLIB
     Indication: NEOPLASM MALIGNANT
     Route: 048
     Dates: start: 20160426, end: 201612

REACTIONS (5)
  - Dyspepsia [None]
  - Abdominal pain upper [None]
  - Nausea [None]
  - Dysgeusia [None]
  - Constipation [None]

NARRATIVE: CASE EVENT DATE: 20170102
